FAERS Safety Report 5822369-3 (Version None)
Quarter: 2008Q3

REPORT INFORMATION
  Report Type: 
  Country: None (occurrence: None)
  Receive Date: 20080725
  Receipt Date: 20080714
  Transmission Date: 20090109
  Serious: Yes (Hospitalization)
  Sender: FDA-Public Use
  Company Number: US-ASTRAZENECA-2008UW01877

PATIENT
  Sex: Female

DRUGS (4)
  1. SEROQUEL [Suspect]
     Dosage: INGESTED SIXTEEN GRAMS
     Route: 048
  2. OTHER UNSPECIFIED MEDICATIONS [Suspect]
  3. ZOLOFT [Concomitant]
  4. WELLBUTRIN [Concomitant]

REACTIONS (3)
  - ELECTROCARDIOGRAM QT PROLONGED [None]
  - OVERDOSE [None]
  - SUICIDE ATTEMPT [None]
